FAERS Safety Report 19711935 (Version 1)
Quarter: 2021Q3

REPORT INFORMATION
  Report Type: Report from Study
  Country: ES (occurrence: QA)
  Receive Date: 20210817
  Receipt Date: 20210817
  Transmission Date: 20211014
  Serious: Yes (Hospitalization, Other)
  Sender: FDA-Public Use
  Company Number: ES-PURDUE-USA-2021-0282079

PATIENT
  Age: 68 Year
  Sex: Female

DRUGS (5)
  1. MORPHINE SULFATE (SIMILAR TO NDA 19?516) [Suspect]
     Active Substance: MORPHINE SULFATE
     Indication: PAIN
     Dosage: UNK
     Route: 065
  2. ABEMACICLIB [Suspect]
     Active Substance: ABEMACICLIB
     Indication: HORMONE RECEPTOR POSITIVE HER2 NEGATIVE BREAST CANCER
     Dosage: 300 MG, DAILY [150 MG, MORNING AND IN THE EVENING]
     Route: 048
  3. FASLODEX [Suspect]
     Active Substance: FULVESTRANT
     Indication: HORMONE RECEPTOR POSITIVE HER2 NEGATIVE BREAST CANCER
     Dosage: 2 DF, MONTHLY [2 INJECTIONS EVERY FOUR WEEKS]
     Route: 065
  4. LOSARTAN POTASSIUM. [Concomitant]
     Active Substance: LOSARTAN POTASSIUM
     Indication: HYPOTENSION
     Dosage: UNK UNK, UNKNOWN
     Route: 065
     Dates: start: 2019
  5. ABEMACICLIB [Suspect]
     Active Substance: ABEMACICLIB
     Dosage: 300 MG, DAILY [150 MG, MORNING AND IN THE EVENING]
     Route: 048
     Dates: start: 202010, end: 20201110

REACTIONS (11)
  - Malabsorption [Not Recovered/Not Resolved]
  - Abdominal discomfort [Recovered/Resolved]
  - Dizziness [Recovered/Resolved]
  - Metastasis [Unknown]
  - Diarrhoea [Recovering/Resolving]
  - Weight decreased [Not Recovered/Not Resolved]
  - Kyphosis [Not Recovered/Not Resolved]
  - Asthenia [Not Recovered/Not Resolved]
  - Pain [Recovering/Resolving]
  - Spinal compression fracture [Recovering/Resolving]
  - Decreased appetite [Not Recovered/Not Resolved]

NARRATIVE: CASE EVENT DATE: 202010
